FAERS Safety Report 25824970 (Version 1)
Quarter: 2025Q3

REPORT INFORMATION
  Report Type: Spontaneous
  Country: EU (occurrence: EU)
  Receive Date: 20250919
  Receipt Date: 20250919
  Transmission Date: 20251021
  Serious: Yes (Other)
  Sender: PURDUE
  Company Number: EU-PURDUE-USA-2025-0320659

PATIENT
  Sex: Male

DRUGS (3)
  1. DEXTROAMPHETAMINE SACCHARATE, AMPHETAMINE ASPARTATE, DEXTROAMPHETAMINE [Suspect]
     Active Substance: AMPHETAMINE ASPARTATE\AMPHETAMINE SULFATE\DEXTROAMPHETAMINE SACCHARATE\DEXTROAMPHETAMINE SULFATE
     Indication: Product used for unknown indication
     Route: 042
  2. HEROIN [Suspect]
     Active Substance: DIAMORPHINE
     Indication: Product used for unknown indication
     Route: 042
  3. SUBUTEX [Suspect]
     Active Substance: BUPRENORPHINE HYDROCHLORIDE
     Indication: Product used for unknown indication
     Route: 042

REACTIONS (6)
  - Suicide attempt [Unknown]
  - Loss of consciousness [Unknown]
  - Drug abuse [Unknown]
  - Accidental overdose [Unknown]
  - Intentional product use issue [Unknown]
  - Drug tolerance [Unknown]
